FAERS Safety Report 16074894 (Version 1)
Quarter: 2019Q1

REPORT INFORMATION
  Report Type: Report from Study
  Country: None (occurrence: US)
  Receive Date: 20190314
  Receipt Date: 20190314
  Transmission Date: 20190418
  Serious: Yes (Hospitalization)
  Sender: FDA-Public Use
  Company Number: US-ABBVIE-19K-163-2690869-00

PATIENT
  Age: 57 Year
  Sex: Female

DRUGS (4)
  1. HUMIRA [Suspect]
     Active Substance: ADALIMUMAB
     Indication: CROHN^S DISEASE
     Route: 058
     Dates: start: 2007, end: 2007
  2. HUMIRA [Suspect]
     Active Substance: ADALIMUMAB
     Route: 058
     Dates: end: 2017
  3. HUMIRA [Suspect]
     Active Substance: ADALIMUMAB
     Route: 058
     Dates: start: 201902
  4. HUMIRA [Suspect]
     Active Substance: ADALIMUMAB
     Route: 058
     Dates: end: 2018

REACTIONS (12)
  - Crying [Recovered/Resolved]
  - Intentional product misuse [Recovering/Resolving]
  - Wrong technique in product usage process [Unknown]
  - Fear [Recovering/Resolving]
  - Fear of injection [Not Recovered/Not Resolved]
  - Anxiety [Recovering/Resolving]
  - Injection site pain [Recovered/Resolved]
  - Emotional distress [Recovered/Resolved]
  - Arthritis [Unknown]
  - Renal failure [Recovering/Resolving]
  - Crohn^s disease [Unknown]
  - Drug ineffective [Unknown]

NARRATIVE: CASE EVENT DATE: 201810
